FAERS Safety Report 25104253 (Version 2)
Quarter: 2025Q3

REPORT INFORMATION
  Report Type: Spontaneous
  Country: EU (occurrence: EU)
  Receive Date: 20250321
  Receipt Date: 20250725
  Transmission Date: 20251021
  Serious: Yes (Other)
  Sender: TEVA
  Company Number: EU-BIOMO-15086

PATIENT
  Age: 68 Year
  Sex: Male

DRUGS (2)
  1. TADALAFIL [Suspect]
     Active Substance: TADALAFIL
     Indication: Product used for unknown indication
     Dosage: QUARTER TABLET
     Route: 048
     Dates: start: 202410
  2. ASPIRIN [Concomitant]
     Active Substance: ASPIRIN
     Indication: Product used for unknown indication
     Dates: start: 2012

REACTIONS (2)
  - Condition aggravated [Not Recovered/Not Resolved]
  - Aortic aneurysm [Not Recovered/Not Resolved]
